FAERS Safety Report 6538696-0 (Version None)
Quarter: 2010Q1

REPORT INFORMATION
  Report Type: 
  Country: None (occurrence: None)
  Receive Date: 20100114
  Receipt Date: 20100114
  Transmission Date: 20100710
  Serious: Yes (Other)
  Sender: FDA-Public Use
  Company Number: None

PATIENT
  Age: 62 Year
  Sex: Male
  Weight: 83.9154 kg

DRUGS (21)
  1. EPINEPHRINE 1:1000 PF AMERICAN REGENT [Suspect]
     Indication: CATARACT
     Dosage: 1 ML - 0.75 ML USED X1 RT INTRAOCULAR
     Route: 031
     Dates: start: 20091217
  2. EPINEPHRINE 1:1000 PF AMERICAN REGENT [Suspect]
  3. XYLOCAINE [Suspect]
     Indication: CATARACT
     Dosage: 0.75 ML X1 RT INTRAOCULAR
     Route: 031
     Dates: start: 20091217
  4. XYLOCAINE [Suspect]
  5. DUOVISC - ALCON [Suspect]
     Indication: CATARACT
     Dosage: 0.4 ML X1 RT. INTRAOCULAR
     Route: 031
     Dates: start: 20091217
  6. VISCOAT - ALCON [Suspect]
     Indication: CATARACT
     Dosage: 0.5 ML X1 RT INTRAOCULAR
     Route: 031
     Dates: start: 20091217
  7. BSS [Suspect]
     Indication: CATARACT
     Dosage: 500ML X1 RT. INTRAOCULAR
     Route: 031
     Dates: start: 20091217
  8. BSS [Suspect]
     Indication: CATARACT
     Dosage: 15 ML X1 RT INTRAOCULAR
     Route: 031
     Dates: start: 20091217
  9. ELMWOOD PARK SAMEDAY CUSTOM CATARACT PACK ALCON [Suspect]
     Indication: CATARACT
     Dosage: 1 X1 RT. EYE
     Dates: start: 20091217
  10. INTREPID 2.45B SLIT KNIFE ALCON [Suspect]
     Indication: CATARACT
     Dosage: 1 X1 RT. EYE
     Dates: start: 20091217
  11. 0.9MM TURBOSONICS MINI-FLARED ABS TIP ALCON 450 KELMAN [Suspect]
     Indication: CATARACT
     Dosage: 1 X1 RT. EYE
     Dates: start: 20091217
  12. L-KNIFE MACKOOL SIDEPORT KNIFE - ALCON [Suspect]
     Indication: CATARACT
     Dosage: 1 X1 RT. EYE
     Dates: start: 20091217
  13. ACRYSOF IQ ASPHERIC NATURAL IOL ALCON [Suspect]
     Indication: CATARACT
     Dosage: 1 X1 RT INTRAOCULAR
     Route: 031
     Dates: start: 20091217
  14. MONARCH III ^D^ CARTRIDGE - ALCON [Suspect]
     Indication: CATARACT
     Dosage: 1 X1 RT INTRAOCULAR
     Route: 031
     Dates: start: 20091217
  15. VISION BLUE 0.06% - DORC DUTH OPHTHALMIC [Suspect]
     Indication: CATARACT
     Dosage: 1 ML X1 RT INTRAOCULAR
     Route: 031
     Dates: start: 20091217
  16. 0.9 MM MICROSMOOTH ULTRA INFUSION SLEEVE KIT ALCON [Suspect]
     Indication: CATARACT
     Dates: start: 20091217
  17. FLASH PAK STERILIZATION CONTAINER SYMMETRY MEDICAL [Suspect]
     Indication: CATARACT
     Dates: start: 20091217
  18. VIGAMOX [Concomitant]
  19. OMNIPRED [Concomitant]
  20. TIMOLOL MALEATE [Concomitant]
  21. IOPIDINE [Concomitant]

REACTIONS (2)
  - ENDOPHTHALMITIS [None]
  - TOXIC ANTERIOR SEGMENT SYNDROME [None]
